FAERS Safety Report 7406213-9 (Version None)
Quarter: 2011Q2

REPORT INFORMATION
  Report Type: 
  Country: None (occurrence: None)
  Receive Date: 20110401
  Receipt Date: 20110317
  Transmission Date: 20111010
  Serious: Yes (Other)
  Sender: FDA-Public Use
  Company Number: 2010SP031086

PATIENT
  Age: 15 Year
  Sex: Male
  Weight: 55 kg

DRUGS (4)
  1. AERIUS (DESLORATADINE /01398501/) [Suspect]
     Indication: RHINITIS ALLERGIC
     Dosage: 7 ML;QD;PO
     Route: 048
     Dates: start: 20100216, end: 20100222
  2. CLARITHROMYCIN [Suspect]
     Indication: LOWER RESPIRATORY TRACT INFECTION
     Dosage: 250 MG;BID;PO
     Route: 048
     Dates: start: 20100216, end: 20100222
  3. SINGULAIR [Concomitant]
  4. FLIXOTIDE [Concomitant]

REACTIONS (2)
  - DRUG INTERACTION [None]
  - DEAFNESS TRANSITORY [None]
